FAERS Safety Report 16573859 (Version 2)
Quarter: 2019Q4

REPORT INFORMATION
  Report Type: Spontaneous
  Country: US (occurrence: US)
  Receive Date: 20190715
  Receipt Date: 20191011
  Transmission Date: 20200122
  Serious: No
  Sender: FDA-Public Use
  Company Number: US-STEMLINE THERAPEUTICS, INC.-2019ST000015

PATIENT
  Age: 84 Year
  Sex: Male
  Weight: 81.72 kg

DRUGS (5)
  1. ELZONRIS [Suspect]
     Active Substance: TAGRAXOFUSP-ERZS
     Dosage: DAILY TIMES FIVE DAYS
     Route: 042
     Dates: start: 20190325, end: 20190329
  2. ELZONRIS [Suspect]
     Active Substance: TAGRAXOFUSP-ERZS
     Dosage: DAILY TIMES FIVE DAYS
     Route: 042
     Dates: start: 20190615
  3. ELZONRIS [Suspect]
     Active Substance: TAGRAXOFUSP-ERZS
     Dosage: DAILY TIMES FIVE DAYS
     Route: 042
     Dates: start: 201907
  4. ELZONRIS [Suspect]
     Active Substance: TAGRAXOFUSP-ERZS
     Indication: BLASTIC PLASMACYTOID DENDRITIC CELL NEOPLASIA
     Route: 042
     Dates: start: 20190325
  5. ELZONRIS [Suspect]
     Active Substance: TAGRAXOFUSP-ERZS
     Dosage: PRESCRIBED TO RECEIVE FIVE DAILY INFUSIONS
     Route: 042
     Dates: start: 20190415

REACTIONS (3)
  - Weight increased [Unknown]
  - Blood albumin decreased [Recovered/Resolved]
  - Chills [Unknown]

NARRATIVE: CASE EVENT DATE: 20190328
